FAERS Safety Report 9490572 (Version 1)
Quarter: 2013Q3

REPORT INFORMATION
  Report Type: Spontaneous
  Country: US (occurrence: US)
  Receive Date: 20130830
  Receipt Date: 20130830
  Transmission Date: 20140515
  Serious: Yes (Other)
  Sender: FDA-Public Use
  Company Number: US-GENZYME-CERZ-1003148

PATIENT
  Age: 51 Year
  Sex: Male
  Weight: 73.3 kg

DRUGS (1)
  1. CEREZYME [Suspect]
     Indication: GAUCHER^S DISEASE
     Dosage: 60 MG/KG, Q2W
     Route: 042

REACTIONS (1)
  - Hypertension [Unknown]
